FAERS Safety Report 5133947-1 (Version None)
Quarter: 2006Q4

REPORT INFORMATION
  Report Type: 
  Country: None (occurrence: None)
  Receive Date: 20061019
  Receipt Date: 20061009
  Transmission Date: 20070319
  Serious: Yes (Other)
  Sender: FDA-Public Use
  Company Number: B0441789A

PATIENT
  Age: 17 Year
  Sex: Male

DRUGS (1)
  1. ALBENZA [Suspect]
     Indication: ECHINOCOCCIASIS
     Dosage: TWICE PER DAY / ORAL
     Route: 048

REACTIONS (5)
  - ABDOMINAL PAIN [None]
  - ALOPECIA [None]
  - ANAEMIA [None]
  - DIARRHOEA [None]
  - PYREXIA [None]
